FAERS Safety Report 19014096 (Version 1)
Quarter: 2021Q1

REPORT INFORMATION
  Report Type: Spontaneous
  Country: CN (occurrence: CN)
  Receive Date: 20210316
  Receipt Date: 20210316
  Transmission Date: 20210420
  Serious: Yes (Hospitalization)
  Sender: FDA-Public Use
  Company Number: CN-CUMBERLAND-2020-CN-000001

PATIENT
  Age: 59 Year
  Sex: Female

DRUGS (5)
  1. OMECLAMOX?PAK [Suspect]
     Active Substance: AMOXICILLIN\CLARITHROMYCIN\OMEPRAZOLE
  2. ACARBOSE. [Suspect]
     Active Substance: ACARBOSE
  3. METFORMIN [Concomitant]
     Active Substance: METFORMIN HYDROCHLORIDE
  4. GLICLAZIDE [Suspect]
     Active Substance: GLICLAZIDE
  5. COLLOIDAL BISMUTH PECTIN [Suspect]
     Active Substance: BISMUTH

REACTIONS (1)
  - Hypoglycaemia [Recovered/Resolved]
